FAERS Safety Report 11836042 (Version 2)
Quarter: 2016Q1

REPORT INFORMATION
  Report Type: Spontaneous
  Country: JP (occurrence: JP)
  Receive Date: 20151215
  Receipt Date: 20160205
  Transmission Date: 20160525
  Serious: Yes (Life-Threatening, Hospitalization, Other)
  Sender: FDA-Public Use
  Company Number: JP-PFIZER INC-2015427022

PATIENT
  Age: 49 Year
  Sex: Male
  Weight: 72.3 kg

DRUGS (5)
  1. SUTENT [Suspect]
     Active Substance: SUNITINIB MALATE
     Dosage: UNK
     Route: 048
     Dates: end: 20151017
  2. METOPIRONE [Suspect]
     Active Substance: METYRAPONE
     Dosage: UNK
     Dates: end: 20151005
  3. BAKTAR [Suspect]
     Active Substance: SULFAMETHOXAZOLE\TRIMETHOPRIM
     Dosage: 1 DF, 1X/DAY
     Route: 048
     Dates: start: 20150806, end: 20150928
  4. SUTENT [Suspect]
     Active Substance: SUNITINIB MALATE
     Indication: PANCREATIC NEUROENDOCRINE TUMOUR
     Dosage: 3 DF, 1X/DAY
     Route: 048
     Dates: start: 20150216, end: 20150928
  5. METOPIRONE [Suspect]
     Active Substance: METYRAPONE
     Dosage: 3X/DAY
     Route: 048
     Dates: start: 20150806, end: 20150928

REACTIONS (3)
  - Hypoaesthesia [Recovering/Resolving]
  - Pain in extremity [Recovering/Resolving]
  - Disseminated intravascular coagulation [Recovered/Resolved]

NARRATIVE: CASE EVENT DATE: 20150922
